FAERS Safety Report 6020621-2 (Version None)
Quarter: 2008Q4

REPORT INFORMATION
  Report Type: 
  Country: None (occurrence: None)
  Receive Date: 20081224
  Receipt Date: 20081224
  Transmission Date: 20090506
  Serious: Yes (Life-Threatening)
  Sender: FDA-Public Use
  Company Number: None

PATIENT
  Age: 73 Year
  Sex: Female
  Weight: 54.4316 kg

DRUGS (3)
  1. ZYMAR [Suspect]
     Indication: CATARACT OPERATION
     Dosage: 4 DROPS EACH DAY FOR ONE WEEK JULY 16TH ONE DROP - JULY 17TH 4 DROPS JULY 18TH 4 DROPS
     Dates: start: 20080716
  2. ZYMAR [Suspect]
     Indication: CATARACT OPERATION
     Dosage: 4 DROPS EACH DAY FOR ONE WEEK JULY 16TH ONE DROP - JULY 17TH 4 DROPS JULY 18TH 4 DROPS
     Dates: start: 20080717
  3. ZYMAR [Suspect]
     Indication: CATARACT OPERATION
     Dosage: 4 DROPS EACH DAY FOR ONE WEEK JULY 16TH ONE DROP - JULY 17TH 4 DROPS JULY 18TH 4 DROPS
     Dates: start: 20080718

REACTIONS (3)
  - DYSPNOEA [None]
  - RASH [None]
  - SWELLING [None]
